FAERS Safety Report 7869337-8 (Version None)
Quarter: 2011Q4

REPORT INFORMATION
  Report Type: 
  Country: None (occurrence: None)
  Receive Date: 20111021
  Receipt Date: 20111014
  Transmission Date: 20120403
  Serious: Yes (Other)
  Sender: FDA-Public Use
  Company Number: DSA_47872_2011

PATIENT

DRUGS (1)
  1. BUPROPION HCL [Suspect]
     Indication: MAJOR DEPRESSION
     Dosage: DF

REACTIONS (2)
  - CONVULSIVE THRESHOLD LOWERED [None]
  - STATUS EPILEPTICUS [None]
